FAERS Safety Report 11754255 (Version 1)
Quarter: 2015Q4

REPORT INFORMATION
  Report Type: Report from Study
  Country: JP (occurrence: JP)
  Receive Date: 20151119
  Receipt Date: 20151119
  Transmission Date: 20160304
  Serious: Yes (Death, Other)
  Sender: FDA-Public Use
  Company Number: JP-OTSUKA-JP-2015-11838

PATIENT

DRUGS (12)
  1. LASIX M [Concomitant]
     Active Substance: FUROSEMIDE
     Indication: OEDEMA DUE TO HEPATIC DISEASE
     Dosage: 40 MG/DAY
     Route: 042
     Dates: start: 20141122, end: 20141130
  2. WARFARIN [Concomitant]
     Active Substance: WARFARIN
     Indication: AORTIC VALVE REPLACEMENT
     Dosage: 1.75 MG/DAY
     Route: 048
  3. ALBUMIN [Concomitant]
     Active Substance: ALBUMIN (HUMAN)
     Indication: OEDEMA DUE TO HEPATIC DISEASE
     Dosage: 100 ML/DAY
     Route: 042
     Dates: start: 20141118, end: 20141120
  4. ALBUMIN [Concomitant]
     Active Substance: ALBUMIN (HUMAN)
     Indication: HYPOALBUMINAEMIA
     Dosage: 100 ML/DAY
     Route: 042
     Dates: start: 20150216, end: 20150218
  5. TOLVAPTAN [Suspect]
     Active Substance: TOLVAPTAN
     Indication: OEDEMA DUE TO HEPATIC DISEASE
     Dosage: 7.5 MG, QD
     Route: 048
     Dates: start: 20141113, end: 20150217
  6. SOLDACTONE [Concomitant]
     Active Substance: CANRENOATE POTASSIUM
     Indication: FLUID RETENTION
     Dosage: 200 MG/DAY
     Route: 042
     Dates: start: 20141122, end: 20141130
  7. ISOLEUCINE W/LEUCINE/VALINE [Concomitant]
     Active Substance: ISOLEUCINE\LEUCINE\VALINE
     Indication: PRODUCT USED FOR UNKNOWN INDICATION
     Dosage: 12.45 G/DAY
     Route: 048
  8. LASIX M [Concomitant]
     Active Substance: FUROSEMIDE
     Dosage: 20 MG/DAY
     Route: 042
     Dates: start: 20150127, end: 20150130
  9. LASIX M [Concomitant]
     Active Substance: FUROSEMIDE
     Dosage: 40 MG/DAY
     Route: 042
     Dates: start: 20150131, end: 20150313
  10. WARFARIN [Concomitant]
     Active Substance: WARFARIN
     Indication: CARDIAC PACEMAKER INSERTION
  11. SOLDACTONE [Concomitant]
     Active Substance: CANRENOATE POTASSIUM
     Dosage: 200 MG/DAY
     Route: 042
     Dates: start: 20150127, end: 20150215
  12. URSODEOXYCHOLIC ACID [Concomitant]
     Active Substance: URSODIOL
     Indication: PRODUCT USED FOR UNKNOWN INDICATION
     Dosage: 600 MG/DAY
     Route: 048

REACTIONS (2)
  - Hepatorenal syndrome [Fatal]
  - Hepatic failure [Fatal]

NARRATIVE: CASE EVENT DATE: 20150216
